FAERS Safety Report 8306032-5 (Version None)
Quarter: 2012Q2

REPORT INFORMATION
  Report Type: 
  Country: None (occurrence: None)
  Receive Date: 20120423
  Receipt Date: 20120410
  Transmission Date: 20120825
  Serious: Yes (Other)
  Sender: FDA-Public Use
  Company Number: CHPA2012US008669

PATIENT
  Sex: Female
  Weight: 60.771 kg

DRUGS (4)
  1. PROZAC [Suspect]
     Dosage: 10 MG DAILY IN THE SPRING, AND 20 MG DAILY IN THE WINTER
     Route: 048
     Dates: start: 20110101
  2. PROZAC [Suspect]
     Dosage: UNK, UNK
     Route: 048
  3. PREVACID 24 HR [Suspect]
     Indication: GASTROOESOPHAGEAL REFLUX DISEASE
     Dosage: 30 MG, QD
     Route: 048
  4. PREMARIN [Suspect]
     Dosage: 0.3 MG DAILY IN THE SUMMER, 0.45 MG DAILY IN THE WINTER
     Route: 048

REACTIONS (10)
  - MYOPIA [None]
  - VISUAL IMPAIRMENT [None]
  - VISION BLURRED [None]
  - SPEECH DISORDER [None]
  - OVERDOSE [None]
  - DEPRESSION [None]
  - HYPERMETROPIA [None]
  - TREATMENT NONCOMPLIANCE [None]
  - OFF LABEL USE [None]
  - INCORRECT DRUG ADMINISTRATION DURATION [None]
